FAERS Safety Report 9515265 (Version 1)
Quarter: 2013Q1

REPORT INFORMATION
  Report Type: Spontaneous
  Country: US (occurrence: None)
  Receive Date: 20130305
  Receipt Date: 20130305
  Transmission Date: 20140127
  Serious: Yes (Other)
  Sender: FDA-Public Use
  Company Number: 163-21880-12101883

PATIENT
  Age: 80 Year
  Sex: Female
  Weight: 66.23 kg

DRUGS (3)
  1. REVLIMID [Suspect]
     Indication: MYELODYSPLASTIC SYNDROME
     Dosage: 2.5 MG, 1 IN 2 D, PO
     Route: 048
     Dates: start: 20120718
  2. PROCRIT [Concomitant]
  3. AVAPRO (IRBESARTIN) (UNKNOWN) [Concomitant]

REACTIONS (1)
  - Hypertension [None]
